FAERS Safety Report 25762476 (Version 2)
Quarter: 2025Q3

REPORT INFORMATION
  Report Type: Report from Study
  Country: CA (occurrence: CA)
  Receive Date: 20250904
  Receipt Date: 20250915
  Transmission Date: 20251021
  Serious: Yes (Hospitalization)
  Sender: TAKEDA
  Company Number: CA-TAKEDA-2025TUS077333

PATIENT
  Sex: Female

DRUGS (26)
  1. HUMAN IMMUNOGLOBULIN G [Suspect]
     Active Substance: HUMAN IMMUNOGLOBULIN G
     Indication: Secondary immunodeficiency
     Dosage: 10 GRAM, 1/WEEK
     Dates: start: 20250818
  2. HUMAN IMMUNOGLOBULIN G [Suspect]
     Active Substance: HUMAN IMMUNOGLOBULIN G
     Dosage: 10 GRAM, 1/WEEK
  3. LEVOTHYROXINE [Concomitant]
     Active Substance: LEVOTHYROXINE
  4. PANTOPRAZOLE [Concomitant]
     Active Substance: PANTOPRAZOLE
  5. MACROBID [Concomitant]
     Active Substance: NITROFURANTOIN\NITROFURANTOIN MONOHYDRATE
  6. BACLOFEN [Concomitant]
     Active Substance: BACLOFEN
  7. MELOXICAM [Concomitant]
     Active Substance: MELOXICAM
  8. DULOXETINE [Concomitant]
     Active Substance: DULOXETINE
  9. CICLESONIDE [Concomitant]
     Active Substance: CICLESONIDE
  10. ZENHALE [Concomitant]
     Active Substance: FORMOTEROL FUMARATE\MOMETASONE FUROATE
  11. DIETARY SUPPLEMENT [Concomitant]
     Active Substance: DIETARY SUPPLEMENT
  12. Deep immune [Concomitant]
  13. CURCUMIN [Concomitant]
     Active Substance: CURCUMIN
  14. SELENIUM [Concomitant]
     Active Substance: SELENIUM
  15. OMEGA 3 [Concomitant]
     Active Substance: CAPSAICIN
  16. DIETARY SUPPLEMENT [Concomitant]
     Active Substance: DIETARY SUPPLEMENT
  17. VITAMIN C [Concomitant]
     Active Substance: ASCORBIC ACID
  18. ZEAXANTHIN [Concomitant]
     Active Substance: ZEAXANTHIN
  19. Strong bones [Concomitant]
  20. LUTEIN [Concomitant]
     Active Substance: LUTEIN
  21. ZINC [Concomitant]
     Active Substance: ZINC
  22. DIETARY SUPPLEMENT [Concomitant]
     Active Substance: DIETARY SUPPLEMENT
  23. Active Green Tea [Concomitant]
  24. CRANBERRY CONCENTRATE [Concomitant]
     Active Substance: CRANBERRY CONCENTRATE
  25. MAGNESIUM CITRATE [Concomitant]
     Active Substance: MAGNESIUM CITRATE
  26. ALPHA LIPOIC ACID [Concomitant]
     Active Substance: .ALPHA.-LIPOIC ACID

REACTIONS (3)
  - Cellulitis [Unknown]
  - Inappropriate schedule of product administration [Unknown]
  - Dizziness [Unknown]
